FAERS Safety Report 7391100-5 (Version None)
Quarter: 2011Q2

REPORT INFORMATION
  Report Type: 
  Country: None (occurrence: None)
  Receive Date: 20110404
  Receipt Date: 20110329
  Transmission Date: 20111010
  Serious: Yes (Other)
  Sender: FDA-Public Use
  Company Number: JP-SP-2011-01794

PATIENT

DRUGS (2)
  1. TICE BCG [Suspect]
     Indication: BLADDER CANCER
     Dosage: 6-8 WEEKS
     Route: 043
  2. IMMUCYST [Suspect]
     Indication: BLADDER CANCER
     Dosage: FOR 6-8 WEEKS
     Route: 043

REACTIONS (2)
  - NEOPLASM PROGRESSION [None]
  - NEOPLASM RECURRENCE [None]
